FAERS Safety Report 12956775 (Version 2)
Quarter: 2016Q4

REPORT INFORMATION
  Report Type: Spontaneous
  Country: GB (occurrence: GB)
  Receive Date: 20161118
  Receipt Date: 20161206
  Transmission Date: 20170207
  Serious: Yes (Other)
  Sender: FDA-Public Use
  Company Number: GB-SA-2016SA209003

PATIENT
  Sex: Female

DRUGS (1)
  1. CEREZYME [Suspect]
     Active Substance: IMIGLUCERASE
     Route: 042

REACTIONS (2)
  - Vessel puncture site thrombosis [Unknown]
  - Arthritis [Unknown]

NARRATIVE: CASE EVENT DATE: 20161121
